FAERS Safety Report 7790876-2 (Version None)
Quarter: 2011Q3

REPORT INFORMATION
  Report Type: 
  Country: None (occurrence: None)
  Receive Date: 20110930
  Receipt Date: 20110926
  Transmission Date: 20111222
  Serious: Yes (Death, Hospitalization, Other)
  Sender: FDA-Public Use
  Company Number: US-ASTRAZENECA-2011SE31727

PATIENT
  Age: 66 Year
  Sex: Male
  Weight: 87.5 kg

DRUGS (31)
  1. NEXIUM [Suspect]
     Route: 048
  2. COREG [Concomitant]
     Route: 048
  3. COREG [Concomitant]
     Route: 048
  4. PROZAC [Concomitant]
     Route: 048
  5. PROSCAR [Concomitant]
     Route: 048
  6. PROVENTIL-HFA [Concomitant]
     Indication: DYSPNOEA
     Dosage: 108 MCG/ACT AERS, ONE TO TWO PUFFS QID
  7. PLAVIX [Concomitant]
     Route: 048
  8. KLONOPIN [Concomitant]
     Indication: SLEEP DISORDER
     Route: 048
  9. ALPRAZOLAM [Concomitant]
     Route: 048
  10. LIPITOR [Concomitant]
     Route: 048
  11. ZOCOR [Concomitant]
     Route: 048
  12. IRON SUPPLEMENT [Concomitant]
     Route: 048
  13. AMBIEN [Concomitant]
     Route: 048
  14. PREDNISONE [Concomitant]
     Route: 048
  15. ADVAIR DISKUS 100/50 [Concomitant]
     Dosage: 500-50 MCG/DOSE BID
  16. ADVAIR DISKUS 100/50 [Concomitant]
     Dosage: 250/50 MCG/DOSE BID
  17. O2 AT 2I [Concomitant]
     Dosage: AT NIGHT
  18. PROZAC [Concomitant]
     Route: 048
  19. DIOVAN HCT [Concomitant]
     Dosage: 160/25 MG
  20. LISINOPRIL [Concomitant]
     Route: 048
  21. ALBUTEROL SULFATE NEBU [Concomitant]
     Dosage: QID
  22. LASIX [Concomitant]
     Route: 048
  23. TRAZODONE HCL [Concomitant]
     Indication: SLEEP DISORDER
     Route: 048
  24. PROVENTIL-HFA [Concomitant]
     Indication: WHEEZING
     Dosage: 108 MCG/ACT AERS, ONE TO TWO PUFFS QID
  25. AVODART [Concomitant]
     Route: 048
  26. MUCINEX [Concomitant]
     Route: 048
  27. IPRATROPIUM BROMIDE [Concomitant]
     Dosage: QID
  28. ASPIRIN [Concomitant]
     Route: 048
  29. PNEUMOVAX 23 [Concomitant]
     Dates: start: 20090101
  30. FOLIC ACID [Concomitant]
     Route: 048
  31. NASONEX [Concomitant]
     Dosage: 50 MCG, TWO SPRAYS DAILY
     Route: 045

REACTIONS (9)
  - HYPERLIPIDAEMIA [None]
  - CARDIAC FAILURE CONGESTIVE [None]
  - CHRONIC OBSTRUCTIVE PULMONARY DISEASE [None]
  - IRON DEFICIENCY ANAEMIA [None]
  - DEPRESSION [None]
  - GASTROOESOPHAGEAL REFLUX DISEASE [None]
  - HYPERTENSION [None]
  - RESPIRATORY FAILURE [None]
  - PERIPHERAL VASCULAR DISORDER [None]
